FAERS Safety Report 24683114 (Version 1)
Quarter: 2024Q4

REPORT INFORMATION
  Report Type: Spontaneous
  Country: CN (occurrence: CN)
  Receive Date: 20241201
  Receipt Date: 20241201
  Transmission Date: 20250115
  Serious: Yes (Hospitalization, Other)
  Sender: NOVARTIS
  Company Number: CN-002147023-NVSC2024CN227035

PATIENT
  Age: 55 Year
  Sex: Female
  Weight: 50 kg

DRUGS (8)
  1. OXCARBAZEPINE [Suspect]
     Active Substance: OXCARBAZEPINE
     Indication: Epilepsy
     Dosage: 300 MG, BID
     Route: 045
     Dates: start: 20241102, end: 20241108
  2. OXCARBAZEPINE [Suspect]
     Active Substance: OXCARBAZEPINE
     Dosage: 300 MG, QD
     Route: 045
     Dates: start: 20241109, end: 20241114
  3. LEVETIRACETAM [Suspect]
     Active Substance: LEVETIRACETAM
     Indication: Epilepsy
     Dosage: 0.5 G, BID (4+7 VARIETIES)
     Route: 045
  4. METOPROLOL TARTRATE [Suspect]
     Active Substance: METOPROLOL TARTRATE
     Indication: Cerebral haemorrhage
     Dosage: 25 MG, BID
     Route: 045
     Dates: start: 20241028, end: 20241114
  5. METOPROLOL TARTRATE [Suspect]
     Active Substance: METOPROLOL TARTRATE
     Indication: Intraventricular haemorrhage
  6. PIRACETAM [Concomitant]
     Active Substance: PIRACETAM
     Indication: Cerebral disorder
     Dosage: 0.4 G, TID
     Route: 045
     Dates: start: 20241028, end: 20241108
  7. PIRACETAM [Concomitant]
     Active Substance: PIRACETAM
     Dosage: 0.8 G, TID
     Route: 045
     Dates: start: 20241109, end: 20241123
  8. PIPERACILLIN [Concomitant]
     Active Substance: PIPERACILLIN
     Indication: Infection
     Dosage: 4.5 G, Q8H (IVGTT)
     Route: 065

REACTIONS (9)
  - Dyspnoea [Unknown]
  - Transaminases increased [Recovered/Resolved]
  - Hyperpyrexia [Recovering/Resolving]
  - Pseudomonas infection [Unknown]
  - Pleural effusion [Unknown]
  - Sputum increased [Recovering/Resolving]
  - Infection [Recovering/Resolving]
  - C-reactive protein increased [Recovering/Resolving]
  - Interleukin level increased [Recovering/Resolving]

NARRATIVE: CASE EVENT DATE: 20241108
